FAERS Safety Report 25186312 (Version 2)
Quarter: 2025Q2

REPORT INFORMATION
  Report Type: Report from Study
  Country: US (occurrence: US)
  Receive Date: 20250410
  Receipt Date: 20250620
  Transmission Date: 20250717
  Serious: Yes (Hospitalization, Other)
  Sender: ABBVIE
  Company Number: US-ABBVIE-6126422

PATIENT
  Sex: Female

DRUGS (2)
  1. HUMIRA [Suspect]
     Active Substance: ADALIMUMAB
     Indication: Rheumatoid arthritis
     Route: 058
     Dates: start: 20200506
  2. HUMIRA [Suspect]
     Active Substance: ADALIMUMAB
     Route: 058

REACTIONS (23)
  - Multiple fractures [Recovering/Resolving]
  - Visual impairment [Not Recovered/Not Resolved]
  - Pharyngeal mass [Not Recovered/Not Resolved]
  - Secretion discharge [Not Recovered/Not Resolved]
  - Rheumatoid arthritis [Not Recovered/Not Resolved]
  - Limb discomfort [Not Recovered/Not Resolved]
  - Pneumonia viral [Not Recovered/Not Resolved]
  - Asthma [Recovering/Resolving]
  - Hip fracture [Recovering/Resolving]
  - Upper limb fracture [Recovering/Resolving]
  - Salivary gland enlargement [Unknown]
  - Dysphonia [Unknown]
  - Herpes zoster [Recovering/Resolving]
  - Herpes zoster oticus [Not Recovered/Not Resolved]
  - Skin infection [Unknown]
  - Fall [Recovered/Resolved]
  - Fall [Recovering/Resolving]
  - Balance disorder [Recovering/Resolving]
  - Asthenia [Not Recovered/Not Resolved]
  - Toothache [Unknown]
  - Gingival disorder [Unknown]
  - Sleep disorder [Not Recovered/Not Resolved]
  - Back disorder [Not Recovered/Not Resolved]

NARRATIVE: CASE EVENT DATE: 20240101
